FAERS Safety Report 10619263 (Version 5)
Quarter: 2015Q1

REPORT INFORMATION
  Report Type: Report from Study
  Country: DE (occurrence: None)
  Receive Date: 20141126
  Receipt Date: 20150327
  Transmission Date: 20150720
  Serious: Yes (Hospitalization, Disabling, Other)
  Sender: FDA-Public Use
  Company Number: 2014-20785

PATIENT
  Age: 86 Year
  Sex: Male

DRUGS (2)
  1. MARCUMAR [Concomitant]
     Active Substance: PHENPROCOUMON
  2. EYLEA [Suspect]
     Active Substance: AFLIBERCEPT
     Indication: AGE-RELATED MACULAR DEGENERATION
     Dosage: 2 MG, EVERY 2-3 MONTHS TOTAL OF 9 INJECTION OF EYLEA, INTRAOCULAR
     Route: 031
     Dates: start: 20130223

REACTIONS (4)
  - Haematoma evacuation [None]
  - Spinal column stenosis [None]
  - Post procedural complication [None]
  - Monoplegia [None]

NARRATIVE: CASE EVENT DATE: 20141115
